FAERS Safety Report 16510564 (Version 1)
Quarter: 2019Q3

REPORT INFORMATION
  Report Type: Spontaneous
  Country: US (occurrence: US)
  Receive Date: 20190701
  Receipt Date: 20190701
  Transmission Date: 20191004
  Serious: No
  Sender: FDA-Public Use
  Company Number: US-GALDERMA-US19009487

PATIENT
  Age: 15 Year
  Sex: Female

DRUGS (12)
  1. PROACTIV GENTLE FORMULA CLARIFYING CLEANSER [Concomitant]
     Active Substance: SALICYLIC ACID
     Indication: SEBORRHOEA
     Route: 061
     Dates: start: 20181201
  2. PROACTIV GENTLE FORMULA CLARIFYING TONER [Concomitant]
     Indication: SEBORRHOEA
     Route: 061
     Dates: start: 20181201
  3. MULTIVITAMIN [Concomitant]
     Active Substance: VITAMINS
  4. PROACTIV GENTLE FORMULA CLARIFYING NIGHT LOTION [Concomitant]
     Indication: SEBORRHOEA
     Route: 061
     Dates: start: 20181201
  5. PROACTIV MD ADAPALENE ACNE TREATMENT [Suspect]
     Active Substance: ADAPALENE
     Indication: ACNE
  6. PROACTIV GENTLE FORMULA CLARIFYING NIGHT LOTION [Concomitant]
     Indication: ACNE
  7. PROACTIV GENTLE FORMULA CLARIFYING DAY LOTION [Concomitant]
     Indication: SEBORRHOEA
     Route: 061
     Dates: start: 20181201
  8. PROACTIV GENTLE FORMULA CLARIFYING DAY LOTION [Concomitant]
     Indication: ACNE
  9. XYSAL [Concomitant]
  10. PROACTIV GENTLE FORMULA CLARIFYING CLEANSER [Concomitant]
     Active Substance: SALICYLIC ACID
     Indication: ACNE
  11. PROACTIV MD ADAPALENE ACNE TREATMENT [Suspect]
     Active Substance: ADAPALENE
     Indication: SEBORRHOEA
     Dosage: 0.1%
     Route: 061
     Dates: start: 20181201
  12. PROACTIV GENTLE FORMULA CLARIFYING TONER [Concomitant]
     Indication: ACNE

REACTIONS (8)
  - Skin irritation [Not Recovered/Not Resolved]
  - Dry skin [Not Recovered/Not Resolved]
  - Skin fissures [Not Recovered/Not Resolved]
  - Inappropriate schedule of product administration [Recovered/Resolved]
  - Skin abrasion [Not Recovered/Not Resolved]
  - Overdose [Recovered/Resolved]
  - Scab [Not Recovered/Not Resolved]
  - Acne [Not Recovered/Not Resolved]

NARRATIVE: CASE EVENT DATE: 201812
